FAERS Safety Report 19719097 (Version 2)
Quarter: 2021Q3

REPORT INFORMATION
  Report Type: Spontaneous
  Country: KR (occurrence: KR)
  Receive Date: 20210818
  Receipt Date: 20210901
  Transmission Date: 20211014
  Serious: Yes (Other)
  Sender: FDA-Public Use
  Company Number: KR-SA-2021SA273177

PATIENT
  Age: 75 Year
  Sex: Male

DRUGS (2)
  1. LIPIDIL SUPRA [Concomitant]
     Active Substance: FENOFIBRATE
     Dosage: 160 MG; 160 MG; FEB?2014 / ONGOING
     Dates: start: 201402
  2. HARNAL [Suspect]
     Active Substance: TAMSULOSIN HYDROCHLORIDE
     Indication: BENIGN PROSTATIC HYPERPLASIA
     Dosage: 0.2 MG, ONCE DAILY (AT NIGHT)
     Dates: start: 201402

REACTIONS (2)
  - Urinary retention [Not Recovered/Not Resolved]
  - Nocturia [Unknown]

NARRATIVE: CASE EVENT DATE: 202107
